FAERS Safety Report 5060198-1 (Version None)
Quarter: 2006Q3

REPORT INFORMATION
  Report Type: 
  Country: None (occurrence: None)
  Receive Date: 20060718
  Receipt Date: 20060628
  Transmission Date: 20061208
  Serious: Yes (Hospitalization)
  Sender: FDA-Public Use
  Company Number: ZA200606006217

PATIENT
  Age: 61 Year
  Sex: Male

DRUGS (4)
  1. CYMBALTA [Suspect]
     Indication: STRESS
     Dosage: DAILY (1/D), ORAL
     Route: 048
     Dates: start: 20060602
  2. STILNOX /FRA/ (ZOLPIDEM) [Concomitant]
  3. TEMAZEPAM [Concomitant]
  4. CEPHALOSPORINS AND RELATED SUBSTANCES [Concomitant]

REACTIONS (5)
  - BLOOD CREATINE PHOSPHOKINASE INCREASED [None]
  - BRADYCARDIA [None]
  - CARDIAC ARREST [None]
  - GRAND MAL CONVULSION [None]
  - HYPONATRAEMIA [None]
